FAERS Safety Report 23141627 (Version 1)
Quarter: 2023Q4

REPORT INFORMATION
  Report Type: Spontaneous
  Country: SG (occurrence: SG)
  Receive Date: 20231103
  Receipt Date: 20231103
  Transmission Date: 20240110
  Serious: Yes (Death, Other)
  Sender: FDA-Public Use
  Company Number: SG-AMGEN-SGPSP2023195400

PATIENT
  Age: 64 Year
  Sex: Male

DRUGS (2)
  1. BEVACIZUMAB [Suspect]
     Active Substance: BEVACIZUMAB
     Indication: Hepatocellular carcinoma
     Dosage: UNK
     Route: 065
  2. ATEZOLIZUMAB [Concomitant]
     Active Substance: ATEZOLIZUMAB
     Dosage: UNK
     Route: 065

REACTIONS (9)
  - Death [Fatal]
  - Pancoast^s syndrome [Unknown]
  - Metastases to lung [Unknown]
  - Pneumonia [Unknown]
  - Lymphangiosis carcinomatosa [Unknown]
  - Myocardial injury [Unknown]
  - Therapy partial responder [Unknown]
  - Pyrexia [Unknown]
  - Off label use [Unknown]
